FAERS Safety Report 11481357 (Version 2)
Quarter: 2017Q4

REPORT INFORMATION
  Report Type: Spontaneous
  Country: US (occurrence: US)
  Receive Date: 20150909
  Receipt Date: 20171114
  Transmission Date: 20180320
  Serious: No
  Sender: FDA-Public Use
  Company Number: US-ACTELION PHARMACEUTICALS US, INC.-A-NJ2015-123515

PATIENT
  Age: 60 Year
  Sex: Female

DRUGS (11)
  1. TRIAMCINOLONE [Concomitant]
     Active Substance: TRIAMCINOLONE
  2. AZITHROMYCIN ANHYDROUS. [Concomitant]
     Active Substance: AZITHROMYCIN ANHYDROUS
  3. GEMFIBROZIL. [Concomitant]
     Active Substance: GEMFIBROZIL
  4. FLUTICASONE. [Concomitant]
     Active Substance: FLUTICASONE
  5. OPSUMIT [Suspect]
     Active Substance: MACITENTAN
     Indication: PULMONARY ARTERIAL HYPERTENSION
     Dosage: 10 MG, QD
     Route: 048
     Dates: start: 20140618
  6. BETAMETHASONE. [Concomitant]
     Active Substance: BETAMETHASONE
  7. TRAMADOL. [Concomitant]
     Active Substance: TRAMADOL
  8. ATORVASTATIN [Concomitant]
     Active Substance: ATORVASTATIN
  9. ESOMEPRA [Concomitant]
     Active Substance: ESOMEPRAZOLE
  10. VITAMIN D [Concomitant]
     Active Substance: CHOLECALCIFEROL
  11. INVOKAMET [Concomitant]
     Active Substance: CANAGLIFLOZIN\METFORMIN HYDROCHLORIDE

REACTIONS (5)
  - Rash [Not Recovered/Not Resolved]
  - Pruritus generalised [Not Recovered/Not Resolved]
  - Memory impairment [Recovered/Resolved]
  - Drug dose omission [Recovered/Resolved]
  - Psoriasis [Not Recovered/Not Resolved]
